FAERS Safety Report 16028096 (Version 4)
Quarter: 2020Q3

REPORT INFORMATION
  Report Type: Report from Study
  Country: TR (occurrence: TR)
  Receive Date: 20190304
  Receipt Date: 20200921
  Transmission Date: 20201102
  Serious: Yes (Hospitalization)
  Sender: FDA-Public Use
  Company Number: TR-ROCHE-2206897

PATIENT
  Age: 70 Year
  Sex: Female
  Weight: 58 kg

DRUGS (49)
  1. KYTRIL [Concomitant]
     Active Substance: GRANISETRON HYDROCHLORIDE
     Dates: start: 20181025, end: 20181025
  2. PERFALGAN [Concomitant]
     Active Substance: ACETAMINOPHEN
     Indication: HYPERCALCAEMIA
     Dates: start: 20181005, end: 20181005
  3. DEKORT [Concomitant]
     Active Substance: DEXAMETHASONE
     Route: 042
     Dates: start: 20181226, end: 20181226
  4. ALOXI [Concomitant]
     Active Substance: PALONOSETRON HYDROCHLORIDE
     Indication: PREMEDICATION
     Dates: start: 20181005, end: 20181005
  5. DUPHALAC [Concomitant]
     Active Substance: LACTULOSE
     Indication: CONSTIPATION
     Dates: start: 20180927, end: 20181024
  6. PERFALGAN [Concomitant]
     Active Substance: ACETAMINOPHEN
     Dates: start: 20181226, end: 20181226
  7. DEKORT [Concomitant]
     Active Substance: DEXAMETHASONE
     Route: 042
     Dates: start: 20181115, end: 20181115
  8. DEKORT [Concomitant]
     Active Substance: DEXAMETHASONE
     Route: 042
     Dates: start: 20181205, end: 20181205
  9. AVIL [Concomitant]
     Active Substance: PHENIRAMINE
     Indication: PREMEDICATION
     Dates: start: 20181005, end: 20181005
  10. AVIL [Concomitant]
     Active Substance: PHENIRAMINE
     Dates: start: 20181115, end: 20181115
  11. ULCURAN [Concomitant]
     Active Substance: RANITIDINE HYDROCHLORIDE
     Indication: PREMEDICATION
     Dates: start: 20181005, end: 20181005
  12. ULCURAN [Concomitant]
     Active Substance: RANITIDINE HYDROCHLORIDE
     Dates: start: 20181025, end: 20181025
  13. ZOMETA [Concomitant]
     Active Substance: ZOLEDRONIC ACID
     Indication: HYPERCALCAEMIA
     Dates: start: 20181005, end: 20181005
  14. ZOMETA [Concomitant]
     Active Substance: ZOLEDRONIC ACID
     Dates: start: 20181205, end: 20181205
  15. ATEZOLIZUMAB. [Suspect]
     Active Substance: ATEZOLIZUMAB
     Indication: OVARIAN CANCER
     Dosage: DATE OF MOST RECENT DOSE OF ATEZOLIZUMAB PRIOR TO AE ONSET 05/OCT/2018: 1200MG?DATE OF MOST RECENT D
     Route: 042
     Dates: start: 20180911
  16. PACLITAXEL. [Suspect]
     Active Substance: PACLITAXEL
     Indication: OVARIAN CANCER
     Dosage: DOSE OF LAST PACLITAXEL ADMINISTERED PRIOR TO AE ONSET ON 05/OCT/2018: 273 MG?DOSE OF LAST PACLITAXE
     Route: 042
     Dates: start: 20180911
  17. BARACLUDE [Concomitant]
     Active Substance: ENTECAVIR
     Indication: HEPATITIS B
     Dates: start: 20180908
  18. NEUPOGEN [Concomitant]
     Active Substance: FILGRASTIM
     Indication: FEBRILE NEUTROPENIA
     Dates: start: 20180919, end: 20180920
  19. PERFALGAN [Concomitant]
     Active Substance: ACETAMINOPHEN
     Dates: start: 20181205, end: 20181205
  20. PERFALGAN [Concomitant]
     Active Substance: ACETAMINOPHEN
     Dates: start: 20190116, end: 20190116
  21. ULCURAN [Concomitant]
     Active Substance: RANITIDINE HYDROCHLORIDE
     Dates: start: 20181205, end: 20181205
  22. ZOMETA [Concomitant]
     Active Substance: ZOLEDRONIC ACID
     Dates: start: 20190116, end: 20190116
  23. AVIL [Concomitant]
     Active Substance: PHENIRAMINE
     Dates: start: 20181205, end: 20181205
  24. MINOSET [Concomitant]
     Active Substance: ACETAMINOPHEN
     Indication: PYREXIA
     Dates: start: 20180912, end: 20180914
  25. NEUPOGEN [Concomitant]
     Active Substance: FILGRASTIM
     Dates: start: 20181106, end: 20181107
  26. PERFALGAN [Concomitant]
     Active Substance: ACETAMINOPHEN
     Indication: LOWER GASTROINTESTINAL HAEMORRHAGE
     Dates: start: 20181008, end: 20181008
  27. PERFALGAN [Concomitant]
     Active Substance: ACETAMINOPHEN
     Dates: start: 20190206, end: 20190206
  28. DEKORT [Concomitant]
     Active Substance: DEXAMETHASONE
     Indication: PREMEDICATION
     Route: 042
     Dates: start: 20181005, end: 20181005
  29. AVIL [Concomitant]
     Active Substance: PHENIRAMINE
     Dates: start: 20181226, end: 20181226
  30. ULCURAN [Concomitant]
     Active Substance: RANITIDINE HYDROCHLORIDE
     Dates: start: 20181115, end: 20181115
  31. KYTRIL [Concomitant]
     Active Substance: GRANISETRON HYDROCHLORIDE
     Dates: start: 20181226, end: 20181226
  32. NEUPOGEN [Concomitant]
     Active Substance: FILGRASTIM
     Dates: start: 20190107, end: 20190108
  33. PERFALGAN [Concomitant]
     Active Substance: ACETAMINOPHEN
     Dates: start: 20181115, end: 20181115
  34. AVIL [Concomitant]
     Active Substance: PHENIRAMINE
     Dates: start: 20181025, end: 20181025
  35. ZOMETA [Concomitant]
     Active Substance: ZOLEDRONIC ACID
     Dates: start: 20181115, end: 20181115
  36. ZOMETA [Concomitant]
     Active Substance: ZOLEDRONIC ACID
     Dates: start: 20181226, end: 20181226
  37. LYRICA [Concomitant]
     Active Substance: PREGABALIN
     Dates: start: 20190426
  38. KYTRIL [Concomitant]
     Active Substance: GRANISETRON HYDROCHLORIDE
     Indication: NAUSEA
     Dosage: RECEIVED ON 05/DEC/2018
     Dates: start: 20180912, end: 20190320
  39. DEKORT [Concomitant]
     Active Substance: DEXAMETHASONE
     Route: 042
     Dates: start: 20181025, end: 20181025
  40. ZOMETA [Concomitant]
     Active Substance: ZOLEDRONIC ACID
     Dates: start: 20181025, end: 20181025
  41. KALINOR [Concomitant]
     Dates: start: 20190320, end: 20190411
  42. BEVACIZUMAB. [Suspect]
     Active Substance: BEVACIZUMAB
     Indication: OVARIAN CANCER
     Dosage: DATE OF MOST RECENT DOSE OF BEVACIZUMAB 05/DEC/2018: 900 MG?DATE OF MOST RECENT DOSE OF BEVACIZUMAB
     Route: 042
     Dates: start: 20181005
  43. CARBOPLATIN. [Suspect]
     Active Substance: CARBOPLATIN
     Indication: OVARIAN CANCER
     Dosage: DOSE TO ACHIEVE A TARGET AREA UNDER THE CURVE (AUC) OF 6 (MG/ML*MIN) ON DAY 1 OF EACH 21?DAY CYCLE F
     Route: 042
     Dates: start: 20180911
  44. ALOXI [Concomitant]
     Active Substance: PALONOSETRON HYDROCHLORIDE
     Dates: start: 20181115, end: 20181115
  45. NEUPOGEN [Concomitant]
     Active Substance: FILGRASTIM
     Dates: start: 20181010, end: 20181010
  46. NEUPOGEN [Concomitant]
     Active Substance: FILGRASTIM
     Dates: start: 20181217, end: 20181219
  47. PERFALGAN [Concomitant]
     Active Substance: ACETAMINOPHEN
     Dates: start: 20181025, end: 20181025
  48. ULCURAN [Concomitant]
     Active Substance: RANITIDINE HYDROCHLORIDE
     Dates: start: 20181226, end: 20181226
  49. ZOMETA [Concomitant]
     Active Substance: ZOLEDRONIC ACID
     Dates: start: 20190206, end: 20190206

REACTIONS (2)
  - Hypertension [Recovering/Resolving]
  - Hyperparathyroidism [Recovered/Resolved]

NARRATIVE: CASE EVENT DATE: 20181014
